FAERS Safety Report 5359121-1 (Version None)
Quarter: 2007Q2

REPORT INFORMATION
  Report Type: 
  Country: None (occurrence: None)
  Receive Date: 20070530
  Receipt Date: 20070206
  Transmission Date: 20071010
  Serious: No
  Sender: FDA-Public Use
  Company Number: 2007PV029660

PATIENT
  Sex: Female

DRUGS (1)
  1. BYETTA [Suspect]
     Indication: DIABETES MELLITUS
     Dosage: 5 MCG BID SC
     Route: 058

REACTIONS (5)
  - ASTHENIA [None]
  - DIZZINESS [None]
  - MALAISE [None]
  - WEIGHT DECREASED [None]
  - WEIGHT INCREASED [None]
